FAERS Safety Report 6633825-2 (Version None)
Quarter: 2010Q1

REPORT INFORMATION
  Report Type: 
  Country: None (occurrence: None)
  Receive Date: 20100315
  Receipt Date: 20100302
  Transmission Date: 20100710
  Serious: Yes (Other)
  Sender: FDA-Public Use
  Company Number: US-JNJFOC-20100302537

PATIENT
  Age: 51 Year
  Sex: Female

DRUGS (2)
  1. CALCIUM CARBONATE [Suspect]
     Indication: HYPOPARATHYROIDISM
     Dosage: 7.2 G (175 MMOL) PER DAY
     Route: 048
  2. LEVOTHYROXINE [Concomitant]
     Indication: HYPOTHYROIDISM

REACTIONS (16)
  - ANAEMIA [None]
  - ASTHENIA [None]
  - CONFUSIONAL STATE [None]
  - DISORIENTATION [None]
  - DRY SKIN [None]
  - HYPERCALCAEMIA [None]
  - HYPOREFLEXIA [None]
  - HYPOTHYROIDISM [None]
  - MALAISE [None]
  - MENTAL STATUS CHANGES [None]
  - METABOLIC ALKALOSIS [None]
  - MILK-ALKALI SYNDROME [None]
  - MUCOSAL DRYNESS [None]
  - RENAL FAILURE [None]
  - SKIN EXFOLIATION [None]
  - SKIN TURGOR DECREASED [None]
